FAERS Safety Report 23621038 (Version 1)
Quarter: 2024Q1

REPORT INFORMATION
  Report Type: Report from Study
  Country: US (occurrence: US)
  Receive Date: 20240312
  Receipt Date: 20240312
  Transmission Date: 20240410
  Serious: Yes (Hospitalization)
  Sender: FDA-Public Use
  Company Number: US-ABBVIE-5598669

PATIENT
  Sex: Female

DRUGS (4)
  1. SKYRIZI [Suspect]
     Active Substance: RISANKIZUMAB-RZAA
     Indication: Psoriatic arthropathy
     Route: 058
  2. SKYRIZI [Suspect]
     Active Substance: RISANKIZUMAB-RZAA
     Dosage: FORM STRENGTH: 150 MG, EVERY 12 WEEKS THEREAFTER
     Route: 058
  3. SKYRIZI [Suspect]
     Active Substance: RISANKIZUMAB-RZAA
     Dosage: WEEK 4, FORM STRENGTH: 150 MG
     Route: 058
     Dates: start: 20230203, end: 20230203
  4. SKYRIZI [Suspect]
     Active Substance: RISANKIZUMAB-RZAA
     Dosage: WEEK 0, FORM STRENGTH: 150 MG
     Route: 058
     Dates: start: 20230106, end: 20230106

REACTIONS (12)
  - Pneumonia [Recovering/Resolving]
  - Illness [Unknown]
  - Skin disorder [Recovering/Resolving]
  - Pneumonia [Recovered/Resolved]
  - Influenza [Recovering/Resolving]
  - Nasopharyngitis [Unknown]
  - Alopecia [Unknown]
  - Asthma [Unknown]
  - Peripheral swelling [Recovering/Resolving]
  - Hepatic mass [Unknown]
  - Respiratory tract infection [Recovering/Resolving]
  - Joint swelling [Recovering/Resolving]

NARRATIVE: CASE EVENT DATE: 20230101
